FAERS Safety Report 18177691 (Version 1)
Quarter: 2020Q3

REPORT INFORMATION
  Report Type: Spontaneous
  Country: SI (occurrence: SI)
  Receive Date: 20200821
  Receipt Date: 20200821
  Transmission Date: 20201103
  Serious: Yes (Death, Hospitalization)
  Sender: FDA-Public Use
  Company Number: SI-TEVA-2020-SI-1816166

PATIENT
  Age: 57 Year
  Sex: Female

DRUGS (2)
  1. DOKSORUBICIN TEVA 2 MG/ML KONCENTRAT ZA RAZTOPINO ZA INFUNDIRANJE [Suspect]
     Active Substance: DOXORUBICIN HYDROCHLORIDE
     Indication: METASTASES TO BONE
  2. DOKSORUBICIN TEVA 2 MG/ML KONCENTRAT ZA RAZTOPINO ZA INFUNDIRANJE [Suspect]
     Active Substance: DOXORUBICIN HYDROCHLORIDE
     Indication: ADENOCARCINOMA
     Route: 042
     Dates: start: 20120312, end: 20120312

REACTIONS (5)
  - Leukopenia [Unknown]
  - Vomiting [Unknown]
  - General physical health deterioration [Unknown]
  - Nausea [Unknown]
  - Anaemia [Unknown]

NARRATIVE: CASE EVENT DATE: 20120319
